FAERS Safety Report 14894281 (Version 3)
Quarter: 2018Q4

REPORT INFORMATION
  Report Type: Spontaneous
  Country: CA (occurrence: CA)
  Receive Date: 20180515
  Receipt Date: 20181113
  Transmission Date: 20190204
  Serious: Yes (Other)
  Sender: FDA-Public Use
  Company Number: US-AMGEN-CANSP2018063416

PATIENT
  Age: 3 Year
  Sex: Female

DRUGS (4)
  1. FLUDARABINE [Concomitant]
     Active Substance: FLUDARABINE PHOSPHATE
     Dosage: UNK
  2. NEUPOGEN [Suspect]
     Active Substance: FILGRASTIM
     Indication: NEUTROPENIA
     Dosage: UNK
     Route: 065
  3. NEUPOGEN [Suspect]
     Active Substance: FILGRASTIM
     Indication: GLYCOGEN STORAGE DISEASE TYPE I
  4. BUSULFAN. [Concomitant]
     Active Substance: BUSULFAN
     Dosage: UNK

REACTIONS (5)
  - Myelodysplastic syndrome transformation [Unknown]
  - Chloroma [Unknown]
  - Acute myeloid leukaemia [Unknown]
  - Off label use [Unknown]
  - Cytogenetic abnormality [Unknown]
